FAERS Safety Report 8201984-6 (Version None)
Quarter: 2012Q1

REPORT INFORMATION
  Report Type: 
  Country: None (occurrence: None)
  Receive Date: 20120308
  Receipt Date: 20120229
  Transmission Date: 20120608
  Serious: Yes (Death)
  Sender: FDA-Public Use
  Company Number: ADR-2012-00483

PATIENT
  Age: 56 Year
  Sex: Female

DRUGS (2)
  1. DILAUDID [Concomitant]
  2. BACLOFEN [Suspect]
     Indication: MUSCLE SPASTICITY
     Dosage: 130.17 MCG/DAY

REACTIONS (1)
  - ACCIDENTAL OVERDOSE [None]
